FAERS Safety Report 20163074 (Version 1)
Quarter: 2021Q4

REPORT INFORMATION
  Report Type: Spontaneous
  Country: KR (occurrence: KR)
  Receive Date: 20211209
  Receipt Date: 20211209
  Transmission Date: 20220303
  Serious: Yes (Other)
  Sender: FDA-Public Use
  Company Number: KR-SUN PHARMACEUTICAL INDUSTRIES LTD-2021RR-319498

PATIENT
  Age: 71 Year
  Sex: Male
  Weight: 55 kg

DRUGS (11)
  1. DONEPEZIL [Interacting]
     Active Substance: DONEPEZIL
     Indication: Dementia
     Dosage: 5 MILLIGRAM, BID
     Route: 065
  2. ROCURONIUM [Interacting]
     Active Substance: ROCURONIUM BROMIDE
     Indication: Muscle relaxant therapy
     Dosage: 50 MILLIGRAM
     Route: 040
  3. ROCURONIUM [Interacting]
     Active Substance: ROCURONIUM BROMIDE
     Indication: Anaesthesia
     Dosage: 5 MILLIGRAM
     Route: 042
  4. ROCURONIUM [Interacting]
     Active Substance: ROCURONIUM BROMIDE
     Dosage: 10 MILLIGRAM, 0.18 MG/KG
     Route: 042
  5. CISATRACURIUM [Concomitant]
     Active Substance: CISATRACURIUM
     Indication: Hypotonia
     Dosage: 6 MILLIGRAM, 0.1 MG/KG
     Route: 065
  6. CISATRACURIUM [Concomitant]
     Active Substance: CISATRACURIUM
     Indication: Anaesthesia
  7. PROPOFOL [Concomitant]
     Active Substance: PROPOFOL
     Indication: General anaesthesia
     Dosage: 2 PERCENT, UNK
     Route: 042
  8. REMIFENTANIL [Concomitant]
     Active Substance: REMIFENTANIL
     Indication: General anaesthesia
     Dosage: UNK
     Route: 042
  9. DESFLURANE [Concomitant]
     Active Substance: DESFLURANE
     Indication: Anaesthesia
     Dosage: 4-6 VOL%
     Route: 065
  10. NEOSTIGMINE [Concomitant]
     Active Substance: NEOSTIGMINE
     Indication: Neuromuscular blockade reversal
     Dosage: 2.5 MILLIGRAM, UNK
     Route: 065
  11. GLYCOPYRROLATE [Concomitant]
     Active Substance: GLYCOPYRROLATE
     Indication: Neuromuscular blockade reversal
     Dosage: 0.4 MILLIGRAM, UNK
     Route: 065

REACTIONS (3)
  - Drug interaction [Unknown]
  - Drug resistance [Unknown]
  - Drug ineffective [Unknown]
